FAERS Safety Report 8014453-3 (Version None)
Quarter: 2011Q4

REPORT INFORMATION
  Report Type: 
  Country: None (occurrence: None)
  Receive Date: 20111229
  Receipt Date: 20111216
  Transmission Date: 20120403
  Serious: Yes (Death, Other)
  Sender: FDA-Public Use
  Company Number: JP-SANOFI-AVENTIS-2011SA080704

PATIENT
  Age: 67 Year
  Sex: Male
  Weight: 71 kg

DRUGS (9)
  1. ALL OTHER THERAPEUTIC PRODUCTS [Concomitant]
     Dates: start: 20110401, end: 20111114
  2. TAXOTERE [Suspect]
     Dosage: 87 MG
     Route: 065
     Dates: start: 20111020
  3. FAMOTIDINE [Concomitant]
     Dosage: DOSAGE: 20 G 2 TIMES / DAY
     Dates: start: 20110401, end: 20111114
  4. ALL OTHER THERAPEUTIC PRODUCTS [Concomitant]
     Dosage: DOSAGE: 2 G 4 TIMES/ DAY
     Dates: start: 20110401, end: 20111114
  5. DICLOFENAC [Concomitant]
     Dosage: DOSAGE : 37.5 G 2 TIMES / DAY
     Dates: start: 20110401, end: 20111114
  6. TAXOTERE [Suspect]
     Indication: NON-SMALL CELL LUNG CANCER
     Dosage: 107 MG
     Route: 065
     Dates: start: 20110928
  7. MAGNESIUM SULFATE [Concomitant]
     Dosage: DOSAGE: 660G 3 TIMES/DAY
     Dates: start: 20110401, end: 20111114
  8. AVASTIN [Suspect]
     Indication: NON-SMALL CELL LUNG CANCER
     Route: 065
     Dates: start: 20110421, end: 20111020
  9. PROMACTA [Concomitant]
     Dosage: DOSAGE: 75 G 2 TIMES/ DAY
     Dates: start: 20110401, end: 20111114

REACTIONS (2)
  - INTERSTITIAL LUNG DISEASE [None]
  - INTESTINAL PERFORATION [None]
